FAERS Safety Report 9068385 (Version 4)
Quarter: 2013Q3

REPORT INFORMATION
  Report Type: Spontaneous
  Country: JP (occurrence: JP)
  Receive Date: 20130206
  Receipt Date: 20130823
  Transmission Date: 20140515
  Serious: Yes (Other)
  Sender: FDA-Public Use
  Company Number: JP-PFIZER INC-2013041022

PATIENT
  Age: 7 Year
  Sex: Male

DRUGS (1)
  1. GENOTROPIN TC [Suspect]
     Indication: PRADER-WILLI SYNDROME
     Dosage: UNK

REACTIONS (1)
  - Malocclusion [Recovering/Resolving]
